FAERS Safety Report 9799122 (Version 2)
Quarter: 2014Q1

REPORT INFORMATION
  Report Type: Spontaneous
  Country: US (occurrence: US)
  Receive Date: 20140106
  Receipt Date: 20140106
  Transmission Date: 20141002
  Serious: Yes (Hospitalization)
  Sender: FDA-Public Use
  Company Number: US-INCYTE CORPORATION-2013IN002871

PATIENT
  Age: 74 Year
  Sex: Male

DRUGS (9)
  1. JAKAFI [Suspect]
     Dosage: 5 MG, BID
     Route: 048
     Dates: start: 20131123
  2. JAKAFI [Suspect]
     Dosage: 10 MG, BID
     Route: 048
     Dates: end: 20131225
  3. LASIX                              /00032601/ [Concomitant]
  4. ZOCOR [Concomitant]
  5. PRILOSEC                           /00661201/ [Concomitant]
  6. COREG [Concomitant]
  7. SEROQUEL [Concomitant]
  8. HUMALOG [Concomitant]
  9. CREON [Concomitant]

REACTIONS (2)
  - Hospitalisation [Unknown]
  - Abdominal pain upper [Recovered/Resolved]
